FAERS Safety Report 5887205-8 (Version None)
Quarter: 2008Q3

REPORT INFORMATION
  Report Type: 
  Country: None (occurrence: None)
  Receive Date: 20080915
  Receipt Date: 20080910
  Transmission Date: 20090109
  Serious: Yes (Life-Threatening)
  Sender: FDA-Public Use
  Company Number: 2008-183305-NL

PATIENT
  Age: 52 Year
  Sex: Female

DRUGS (4)
  1. ROCURONIUM BROMIDE [Suspect]
     Dosage: INTRAVENOUS (NOS)
     Route: 042
     Dates: start: 20040708, end: 20040708
  2. PROPOFOL [Concomitant]
  3. REMIFENTANIL [Concomitant]
  4. FLUTICASONE PROPIONATE [Concomitant]

REACTIONS (2)
  - BRADYCARDIA [None]
  - CARDIAC ARREST [None]
